FAERS Safety Report 26169935 (Version 1)
Quarter: 2025Q4

REPORT INFORMATION
  Report Type: Spontaneous
  Country: US (occurrence: None)
  Receive Date: 20251216
  Receipt Date: 20251216
  Transmission Date: 20260117
  Serious: No
  Sender: FDA-CTU
  Company Number: None

PATIENT

DRUGS (1)
  1. INSULIN LISPRO [Suspect]
     Active Substance: INSULIN LISPRO

REACTIONS (4)
  - Influenza like illness [None]
  - Diabetic ketoacidosis [None]
  - Hypophagia [None]
  - Therapy cessation [None]

NARRATIVE: CASE EVENT DATE: 20251216
